FAERS Safety Report 16733905 (Version 1)
Quarter: 2019Q3

REPORT INFORMATION
  Report Type: Report from Study
  Country: CN (occurrence: CN)
  Receive Date: 20190823
  Receipt Date: 20190823
  Transmission Date: 20191005
  Serious: Yes (Other)
  Sender: FDA-Public Use
  Company Number: CN-ROCHE-2389803

PATIENT

DRUGS (2)
  1. CAPECITABINE. [Suspect]
     Active Substance: CAPECITABINE
     Indication: GASTRIC CANCER
     Dosage: 1.0-2.5G/M2 PER DAY
     Route: 048
  2. APATINIB [Suspect]
     Active Substance: APATINIB
     Indication: GASTRIC CANCER
     Dosage: 250-500MG
     Route: 048

REACTIONS (7)
  - Hypertension [Unknown]
  - Leukopenia [Unknown]
  - Nausea [Unknown]
  - Diarrhoea [Unknown]
  - Proteinuria [Unknown]
  - Palmar-plantar erythrodysaesthesia syndrome [Unknown]
  - Fatigue [Unknown]
